FAERS Safety Report 4721305-0 (Version None)
Quarter: 2005Q3

REPORT INFORMATION
  Report Type: 
  Country: None (occurrence: None)
  Receive Date: 20050721
  Receipt Date: 20040609
  Transmission Date: 20060218
  Serious: No
  Sender: FDA-Public Use
  Company Number: US-BRISTOL-MYERS SQUIBB COMPANY-12609707

PATIENT
  Age: 82 Year
  Sex: Female
  Weight: 43 kg

DRUGS (5)
  1. COUMADIN [Suspect]
     Indication: PROPHYLAXIS
     Dosage: 2 TABLETS DAILY IN THE EVENING RECENT PRESCRIPTION NDC# 00056017070
  2. EVISTA [Concomitant]
  3. FOLIC ACID [Concomitant]
  4. LEVOXYL [Concomitant]
  5. ZITHROMAX [Concomitant]

REACTIONS (3)
  - DECREASED APPETITE [None]
  - INTERNATIONAL NORMALISED RATIO DECREASED [None]
  - IRRITABILITY [None]
